FAERS Safety Report 9581942 (Version 1)
Quarter: 2013Q4

REPORT INFORMATION
  Report Type: Spontaneous
  Country: US (occurrence: US)
  Receive Date: 20131002
  Receipt Date: 20131002
  Transmission Date: 20140711
  Serious: Yes (Hospitalization, Other)
  Sender: FDA-Public Use
  Company Number: US-ELI_LILLY_AND_COMPANY-US201309007757

PATIENT
  Age: 6 Year
  Sex: Female

DRUGS (2)
  1. HUMATROPE [Suspect]
     Indication: GROWTH HORMONE DEFICIENCY
     Dosage: 0.25 DF, UNKNOWN
     Route: 065
  2. PREVACID [Concomitant]

REACTIONS (3)
  - Urosepsis [Unknown]
  - Urinary tract infection [Unknown]
  - Drug dose omission [Unknown]
